FAERS Safety Report 4767690-5 (Version None)
Quarter: 2005Q3

REPORT INFORMATION
  Report Type: 
  Country: None (occurrence: None)
  Receive Date: 20050913
  Receipt Date: 20050901
  Transmission Date: 20060218
  Serious: Yes (Hospitalization)
  Sender: FDA-Public Use
  Company Number: ES-BRISTOL-MYERS SQUIBB COMPANY-13099320

PATIENT
  Age: 65 Year
  Sex: Male

DRUGS (2)
  1. ABILIFY [Suspect]
     Indication: SCHIZOPHRENIA
     Route: 048
  2. CHLORDIAZEPOXIDE [Concomitant]
     Indication: SCHIZOPHRENIA

REACTIONS (6)
  - BACK PAIN [None]
  - BLOOD PRESSURE ABNORMAL [None]
  - DYSSTASIA [None]
  - FEELING HOT [None]
  - HEADACHE [None]
  - MALAISE [None]
